FAERS Safety Report 4901173-4 (Version None)
Quarter: 2006Q1

REPORT INFORMATION
  Report Type: 
  Country: None (occurrence: None)
  Receive Date: 20060201
  Receipt Date: 20060117
  Transmission Date: 20060701
  Serious: Yes (Other)
  Sender: FDA-Public Use
  Company Number: DE200601002221

PATIENT
  Age: 58 Year
  Sex: Female

DRUGS (7)
  1. CYMBALTA [Suspect]
     Indication: DEPRESSION
     Dosage: 30 MG, EACH MORNING, ORAL
     Route: 048
     Dates: start: 20060103
  2. LEVOTHYROXINE SODIUM [Concomitant]
  3. PASPERTIN (METOCLOPRAMIDE HYDROCHLORIDE) [Concomitant]
  4. NEXIUM [Concomitant]
  5. NEUROTRAT (CYANOCOBALAMIN, LIVER EXTRACT, PYRIDOXINE HYDROCHLORIDE, TH [Concomitant]
  6. FOLVERLAN (FOLIC ACID) [Concomitant]
  7. ASPIRIN [Concomitant]

REACTIONS (1)
  - HYPERTENSION [None]
